FAERS Safety Report 8348208-7 (Version None)
Quarter: 2012Q2

REPORT INFORMATION
  Report Type: 
  Country: None (occurrence: None)
  Receive Date: 20120507
  Receipt Date: 20120425
  Transmission Date: 20120825
  Serious: Yes (Hospitalization, Other)
  Sender: FDA-Public Use
  Company Number: 2012MA005426

PATIENT
  Age: 59 Year
  Sex: Female

DRUGS (2)
  1. GLYBURIDE [Concomitant]
  2. METFORMIN HYDROCHLORIDE [Suspect]
     Indication: TYPE 2 DIABETES MELLITUS
     Dosage: 2.55 GM;QD

REACTIONS (5)
  - DRUG HYPERSENSITIVITY [None]
  - ARTHRALGIA [None]
  - LEUKOCYTOCLASTIC VASCULITIS [None]
  - PNEUMONITIS [None]
  - CARDIAC MURMUR [None]
